FAERS Safety Report 9522778 (Version 3)
Quarter: 2014Q1

REPORT INFORMATION
  Report Type: Spontaneous
  Country: FI (occurrence: FI)
  Receive Date: 20130913
  Receipt Date: 20140326
  Transmission Date: 20141002
  Serious: Yes (Hospitalization, Other)
  Sender: FDA-Public Use
  Company Number: PHHY2013FI101316

PATIENT
  Age: 35 Year
  Sex: Male

DRUGS (5)
  1. GILENYA [Suspect]
     Indication: MULTIPLE SCLEROSIS
     Dosage: 0.5 MG, DAILY
     Route: 048
     Dates: start: 201112, end: 20130910
  2. TRILEPTAL [Concomitant]
     Indication: EPILEPSY
     Dosage: 300 MG, BID
     Route: 048
  3. TRILEPTAL [Concomitant]
     Dosage: 1200 MG, DAILY
     Route: 048
     Dates: start: 2000
  4. TROSPIUM [Concomitant]
     Indication: DYSURIA
     Dosage: 20 MG, UNK
     Route: 048
     Dates: start: 2008
  5. BACLOFEN [Concomitant]
     Indication: MUSCLE SPASTICITY
     Dosage: 10 MG, UNK (1-3 TIMES DAILY)
     Route: 048

REACTIONS (2)
  - Renal cancer [Unknown]
  - Multiple sclerosis relapse [Recovering/Resolving]
